FAERS Safety Report 5383682-X (Version None)
Quarter: 2007Q3

REPORT INFORMATION
  Report Type: 
  Country: None (occurrence: None)
  Receive Date: 20070706
  Receipt Date: 20070702
  Transmission Date: 20080115
  Serious: Yes (Other)
  Sender: FDA-Public Use
  Company Number: JPI-P-001674

PATIENT
  Age: 39 Year
  Sex: Female
  Weight: 58.0604 kg

DRUGS (9)
  1. XYREM [Suspect]
     Indication: FIBROMYALGIA
     Dosage: 9 GM (4.5 GM, 2 IN 1 D), ORAL
     Route: 048
     Dates: start: 20040101
  2. XYREM [Suspect]
     Indication: NARCOLEPSY
     Dosage: 9 GM (4.5 GM, 2 IN 1 D), ORAL
     Route: 048
     Dates: start: 20040101
  3. ALPRAZOLAM [Concomitant]
  4. FLUTICASONE PROPIONATE [Concomitant]
  5. ALBUTEROL [Concomitant]
  6. BIRTH CONTROL PILLS (CONTRACEPTIVES NOS) [Concomitant]
  7. LITHIUM CARBONATE [Concomitant]
  8. MODAFINIL [Concomitant]
  9. LAMOTRIGINE [Concomitant]

REACTIONS (2)
  - CEREBROVASCULAR ACCIDENT [None]
  - FEELING ABNORMAL [None]
